FAERS Safety Report 4643843-1 (Version None)
Quarter: 2005Q2

REPORT INFORMATION
  Report Type: 
  Country: None (occurrence: None)
  Receive Date: 20050425
  Receipt Date: 20050104
  Transmission Date: 20051028
  Serious: Yes (Hospitalization)
  Sender: FDA-Public Use
  Company Number: US-MERCK-0501USA00364

PATIENT
  Age: 73 Year
  Sex: Female
  Weight: 66 kg

DRUGS (6)
  1. VIOXX [Suspect]
     Indication: RHEUMATOID ARTHRITIS
     Route: 048
     Dates: start: 20020601, end: 20021201
  2. VIOXX [Suspect]
     Route: 048
     Dates: start: 20021201, end: 20040930
  3. METFORMIN [Concomitant]
     Indication: DIABETES MELLITUS
     Route: 065
  4. HUMULIN [Concomitant]
     Indication: DIABETES MELLITUS
     Route: 065
  5. LEVOXYL [Concomitant]
     Indication: THYROID DISORDER
     Route: 065
  6. ZOCOR [Concomitant]
     Indication: HYPERLIPIDAEMIA
     Route: 065

REACTIONS (43)
  - ABDOMINAL PAIN [None]
  - ANXIETY [None]
  - ASTHENIA [None]
  - BEREAVEMENT REACTION [None]
  - CALCULUS URETERIC [None]
  - CEREBROVASCULAR ACCIDENT [None]
  - CHEST PAIN [None]
  - COLITIS [None]
  - CONCUSSION [None]
  - CONSTIPATION [None]
  - CONTUSION [None]
  - COSTOVERTEBRAL ANGLE TENDERNESS [None]
  - COUGH [None]
  - DEPRESSION [None]
  - DIARRHOEA [None]
  - DIZZINESS POSTURAL [None]
  - FALL [None]
  - FATIGUE [None]
  - FEAR [None]
  - FEAR OF DISEASE [None]
  - FEELING COLD [None]
  - HAEMATOMA [None]
  - HAEMORRHOIDS [None]
  - HEMIPARESIS [None]
  - HERPES ZOSTER [None]
  - HUMAN BITE [None]
  - HYPERGLYCAEMIA [None]
  - HYPERLIPIDAEMIA [None]
  - HYPERTENSION [None]
  - HYPOAESTHESIA [None]
  - INTENTIONAL SELF-INJURY [None]
  - ISCHAEMIC STROKE [None]
  - JAUNDICE [None]
  - LIMB INJURY [None]
  - LUNG NEOPLASM [None]
  - MUSCLE SPASMS [None]
  - PAIN [None]
  - PALLOR [None]
  - PARAESTHESIA [None]
  - RHEUMATOID ARTHRITIS [None]
  - SELF INJURIOUS BEHAVIOUR [None]
  - TRANSIENT ISCHAEMIC ATTACK [None]
  - URINARY TRACT INFECTION [None]
